FAERS Safety Report 10061910 (Version 1)
Quarter: 2014Q2

REPORT INFORMATION
  Report Type: Report from Study
  Country: ZA (occurrence: ZA)
  Receive Date: 20140407
  Receipt Date: 20140407
  Transmission Date: 20141212
  Serious: Yes (Other)
  Sender: FDA-Public Use
  Company Number: ZA-SA-2014SA036941

PATIENT
  Age: 49 Year
  Sex: Female
  Weight: 67.6 kg

DRUGS (9)
  1. RIFAMPICIN [Suspect]
     Indication: PULMONARY TUBERCULOSIS
     Route: 048
     Dates: start: 20080603, end: 20081201
  2. PYRAZINAMIDE [Suspect]
     Indication: PULMONARY TUBERCULOSIS
     Route: 048
     Dates: start: 20080603, end: 20081201
  3. ISONIAZID [Suspect]
     Indication: PULMONARY TUBERCULOSIS
     Route: 048
     Dates: start: 20080603, end: 20081201
  4. MOXIFLOXACIN [Suspect]
     Indication: PULMONARY TUBERCULOSIS
     Route: 048
     Dates: start: 20080603, end: 20081201
  5. PLACEBO [Suspect]
     Indication: PULMONARY TUBERCULOSIS
     Route: 048
     Dates: start: 20080603, end: 20081201
  6. HYDROCHLOROTHIAZIDE [Concomitant]
     Dates: start: 20090330
  7. ENALAPRIL [Concomitant]
     Dates: start: 20090519
  8. ATENOLOL [Concomitant]
     Dates: start: 20090519
  9. OMEPRAZOLE [Concomitant]
     Dates: start: 20090520

REACTIONS (1)
  - Hypertensive crisis [Recovered/Resolved]
